FAERS Safety Report 18567759 (Version 1)
Quarter: 2020Q4

REPORT INFORMATION
  Report Type: Spontaneous
  Country: FR (occurrence: FR)
  Receive Date: 20201202
  Receipt Date: 20201202
  Transmission Date: 20210114
  Serious: Yes (Other)
  Sender: FDA-Public Use
  Company Number: FR-SA-2020SA344227

PATIENT

DRUGS (6)
  1. DUPIXENT [Suspect]
     Active Substance: DUPILUMAB
     Indication: DERMATOSIS
     Dosage: 1 DF, QOW
     Route: 058
     Dates: start: 20200820, end: 20200930
  2. FUROSEMIDE. [Concomitant]
     Active Substance: FUROSEMIDE
     Dosage: 40 GBQ, QD, 40 MG IN THE EVENING
  3. TRIATEC [RAMIPRIL] [Concomitant]
     Active Substance: RAMIPRIL
  4. RESITUNE [Concomitant]
     Active Substance: ASPIRIN
  5. DIAMICRON [Concomitant]
     Active Substance: GLICLAZIDE
  6. OGASTORO [Concomitant]
     Active Substance: LANSOPRAZOLE

REACTIONS (1)
  - Toxic skin eruption [Not Recovered/Not Resolved]

NARRATIVE: CASE EVENT DATE: 20201005
